FAERS Safety Report 5525104-1 (Version None)
Quarter: 2007Q4

REPORT INFORMATION
  Report Type: 
  Country: None (occurrence: None)
  Receive Date: 20071119
  Receipt Date: 20071109
  Transmission Date: 20080405
  Serious: Yes (Death, Life-Threatening, Hospitalization)
  Sender: FDA-Public Use
  Company Number: 20074247

PATIENT
  Age: 7 Year
  Sex: Male

DRUGS (1)
  1. LIORESAL [Suspect]
     Indication: MUSCLE SPASTICITY
     Dosage: 80 MCG, DAILY, INTRATHECAL
     Route: 037

REACTIONS (8)
  - HYPOVENTILATION [None]
  - INTESTINAL PERFORATION [None]
  - MUSCLE TIGHTNESS [None]
  - PALLOR [None]
  - PHYSICAL EXAMINATION ABNORMAL [None]
  - RESPIRATORY RATE INCREASED [None]
  - RESPIRATORY TRACT CONGESTION [None]
  - TREATMENT NONCOMPLIANCE [None]
